FAERS Safety Report 4476600-X (Version None)
Quarter: 2004Q4

REPORT INFORMATION
  Report Type: 
  Country: None (occurrence: None)
  Receive Date: 20041013
  Receipt Date: 20040924
  Transmission Date: 20050328
  Serious: Yes (Other)
  Sender: FDA-Public Use
  Company Number: USA040773309

PATIENT
  Sex: Female

DRUGS (5)
  1. FORTEO [Suspect]
     Indication: OSTEOPOROSIS
     Dates: start: 20031001
  2. PREVACID [Concomitant]
  3. SYNTHROID [Concomitant]
  4. FLONASE [Concomitant]
  5. YRTEC (CETIRIZINE HYDROCHLORIDE) [Concomitant]

REACTIONS (4)
  - BREAST CANCER FEMALE [None]
  - GALLBLADDER OPERATION [None]
  - OESTROGEN RECEPTOR ASSAY POSITIVE [None]
  - PHARMACEUTICAL PRODUCT COMPLAINT [None]
